FAERS Safety Report 7060672-2 (Version None)
Quarter: 2010Q4

REPORT INFORMATION
  Report Type: 
  Country: None (occurrence: None)
  Receive Date: 20101025
  Receipt Date: 20101015
  Transmission Date: 20110411
  Serious: Yes (Hospitalization)
  Sender: FDA-Public Use
  Company Number: FR-B.I. PHARMACEUTICALS,INC./RIDGEFIELD-2010-FF-00701FF

PATIENT
  Sex: Female
  Weight: 75 kg

DRUGS (10)
  1. PRADAXA [Suspect]
     Indication: HIP ARTHROPLASTY
     Dosage: 110 MG
     Route: 048
     Dates: start: 20100822, end: 20100822
  2. PRADAXA [Suspect]
     Indication: THROMBOSIS PROPHYLAXIS
     Dosage: 220 MG
     Route: 048
     Dates: start: 20100823, end: 20100829
  3. PARACETAMOL [Concomitant]
     Indication: PROCEDURAL PAIN
     Dosage: 4 G
     Route: 048
     Dates: start: 20100822
  4. MORPHINE [Concomitant]
  5. EFFEXOR XR [Concomitant]
     Dosage: 75 MG
     Route: 048
  6. PRETERAX [Concomitant]
     Dosage: 4 MG
     Route: 048
  7. LEVOTHYROXINE SODIUM [Concomitant]
     Dosage: 50 MCG
  8. PROTELOS [Concomitant]
  9. PARIET [Concomitant]
     Dosage: 40 MG
  10. IMOVANE [Concomitant]

REACTIONS (1)
  - DEEP VEIN THROMBOSIS [None]
